FAERS Safety Report 11291706 (Version 1)
Quarter: 2015Q3

REPORT INFORMATION
  Report Type: Spontaneous
  Country: US (occurrence: US)
  Receive Date: 20150722
  Receipt Date: 20150722
  Transmission Date: 20151125
  Serious: No
  Sender: FDA-Public Use
  Company Number: US-009507513-1507USA006549

PATIENT
  Age: 55 Year
  Sex: Male

DRUGS (1)
  1. ASMANEX [Suspect]
     Active Substance: MOMETASONE FUROATE
     Indication: ASTHMA
     Dosage: 1 DF, BID, ^ONE INHALATION TWICE A DAY, ORAL INHALATION(RESPIRATORY)
     Route: 055
     Dates: start: 201405

REACTIONS (3)
  - Drug ineffective [Recovered/Resolved]
  - Drug dose omission [Unknown]
  - Product quality issue [Unknown]

NARRATIVE: CASE EVENT DATE: 20150709
